FAERS Safety Report 9187082 (Version 1)
Quarter: 2013Q1

REPORT INFORMATION
  Report Type: Spontaneous
  Country: US (occurrence: US)
  Receive Date: 20130325
  Receipt Date: 20130325
  Transmission Date: 20140127
  Serious: Yes (Other)
  Sender: FDA-Public Use
  Company Number: US-ELI_LILLY_AND_COMPANY-US201303007408

PATIENT
  Sex: Female

DRUGS (6)
  1. ZYPREXA [Suspect]
     Indication: BIPOLAR DISORDER
     Dosage: 20 MG, QD
  2. DEPAKOTE ER [Concomitant]
     Indication: BIPOLAR DISORDER
     Dosage: 2500 MG, QD
  3. HYDROCORTISONE [Concomitant]
     Indication: ADDISON^S DISEASE
     Dosage: 10 MG, TID
  4. SYNTHROID [Concomitant]
     Indication: HYPOTHYROIDISM
     Dosage: 137 DF, QD
  5. CYTOMEL [Concomitant]
     Indication: HYPOTHYROIDISM
     Dosage: 25 DF, QD
  6. METFORMIN [Concomitant]
     Indication: DIABETES MELLITUS
     Dosage: 500 MG, BID

REACTIONS (8)
  - Enterococcal infection [Unknown]
  - Type 2 diabetes mellitus [Unknown]
  - Diabetic neuropathy [Unknown]
  - Hypothyroidism [Unknown]
  - Addison^s disease [Unknown]
  - Thyroid function test abnormal [Unknown]
  - Urinary incontinence [Unknown]
  - Urinary tract infection [Unknown]
